FAERS Safety Report 14797754 (Version 1)
Quarter: 2018Q2

REPORT INFORMATION
  Report Type: Spontaneous
  Country: US (occurrence: US)
  Receive Date: 20180424
  Receipt Date: 20180424
  Transmission Date: 20180711
  Serious: No
  Sender: FDA-Public Use
  Company Number: US-009507513-1804USA000252

PATIENT
  Age: 64 Year
  Sex: Male

DRUGS (1)
  1. BELSOMRA [Suspect]
     Active Substance: SUVOREXANT
     Indication: INSOMNIA
     Dosage: 20 MG; 1 TABLET/ DAILY
     Route: 048
     Dates: start: 20180328, end: 20180329

REACTIONS (3)
  - Lack of spontaneous speech [Unknown]
  - Hallucination [Unknown]
  - Movement disorder [Unknown]

NARRATIVE: CASE EVENT DATE: 20180328
